FAERS Safety Report 8591348 (Version 5)
Quarter: 2013Q4

REPORT INFORMATION
  Report Type: Spontaneous
  Country: US (occurrence: US)
  Receive Date: 20120601
  Receipt Date: 20131030
  Transmission Date: 20140711
  Serious: Yes (Other)
  Sender: FDA-Public Use
  Company Number: US-ASTRAZENECA-2012SE28939

PATIENT
  Age: 53 Year
  Sex: Female

DRUGS (7)
  1. NEXIUM [Suspect]
     Indication: GASTRIC DISORDER
     Route: 048
     Dates: start: 2005
  2. PRILOSEC [Suspect]
     Route: 048
  3. PRILOSEC [Suspect]
     Route: 048
     Dates: start: 201201
  4. PRILOSEC [Suspect]
     Route: 048
  5. VALIUM [Concomitant]
     Dosage: TAKING LOW DOSE
  6. ACIPHEX [Concomitant]
  7. PROTONIX [Concomitant]

REACTIONS (17)
  - Angina pectoris [Unknown]
  - Laryngeal discomfort [Unknown]
  - Chest pain [Unknown]
  - Gastric polyps [Unknown]
  - Psoriatic arthropathy [Unknown]
  - Nasopharyngitis [Unknown]
  - Dyspepsia [Unknown]
  - Liver disorder [Unknown]
  - Gastrooesophageal reflux disease [Unknown]
  - Activities of daily living impaired [Unknown]
  - Abdominal discomfort [Unknown]
  - Diarrhoea [Unknown]
  - Abdominal pain upper [Unknown]
  - Nausea [Unknown]
  - Vomiting [Unknown]
  - Intentional drug misuse [Unknown]
  - Drug ineffective [Unknown]
